FAERS Safety Report 9281581 (Version 2)
Quarter: 2013Q2

REPORT INFORMATION
  Report Type: Spontaneous
  Country: BR (occurrence: BR)
  Receive Date: 20130509
  Receipt Date: 20130529
  Transmission Date: 20140414
  Serious: Yes (Other)
  Sender: FDA-Public Use
  Company Number: BR-ELI_LILLY_AND_COMPANY-BR201305000831

PATIENT
  Sex: 0

DRUGS (2)
  1. HUMULIN NPH [Suspect]
     Dosage: UNK, UNKNOWN
     Route: 065
  2. HUMULIN REGULAR [Suspect]
     Dosage: UNK, UNKNOWN
     Route: 065

REACTIONS (5)
  - Blindness [Not Recovered/Not Resolved]
  - Blood glucose increased [Unknown]
  - Diabetes mellitus inadequate control [Unknown]
  - Renal disorder [Unknown]
  - Diabetes mellitus inadequate control [Unknown]
